FAERS Safety Report 8342091-1 (Version None)
Quarter: 2012Q2

REPORT INFORMATION
  Report Type: 
  Country: None (occurrence: None)
  Receive Date: 20120507
  Receipt Date: 20120503
  Transmission Date: 20120825
  Serious: Yes (Life-Threatening, Hospitalization)
  Sender: FDA-Public Use
  Company Number: US-GILEAD-2012-0054083

PATIENT
  Sex: Female

DRUGS (10)
  1. LETAIRIS [Suspect]
     Indication: PULMONARY HYPERTENSION
     Dosage: 5 MG, UNK
     Route: 048
     Dates: start: 20120409
  2. INTEGRA F [Concomitant]
  3. SINGULAIR [Concomitant]
  4. ADVAIR HFA [Concomitant]
  5. HYZAAR [Concomitant]
  6. HYDROCHLOROTHIAZIDE [Concomitant]
  7. XOLAIR [Concomitant]
  8. LORATADINE [Concomitant]
  9. OMEPRAZOLE [Concomitant]
  10. FAMOTIDINE [Concomitant]

REACTIONS (9)
  - HYPOTENSION [None]
  - DIZZINESS [None]
  - PULMONARY HYPERTENSION [None]
  - ORTHOSTATIC HYPOTENSION [None]
  - HYPOXIA [None]
  - BLOOD PRESSURE DECREASED [None]
  - ASTHMA [None]
  - ACUTE RESPIRATORY FAILURE [None]
  - CARDIAC ENZYMES INCREASED [None]
